FAERS Safety Report 4546676-X (Version None)
Quarter: 2005Q1

REPORT INFORMATION
  Report Type: 
  Country: None (occurrence: None)
  Receive Date: 20050105
  Receipt Date: 20041221
  Transmission Date: 20050727
  Serious: Yes (Other)
  Sender: FDA-Public Use
  Company Number: 000#8#2004-00812

PATIENT
  Age: 33 Year
  Sex: Female

DRUGS (2)
  1. GLYCERYL TRINITRATE, SOLUTION (GLYCERYL TRINITRATE) [Suspect]
     Indication: MIGRAINE
     Dosage: 1,500 NG/KG/MIN INTRAVENOUS DRIP
     Route: 041
  2. SB-220453 [Suspect]
     Indication: MIGRAINE PROPHYLAXIS
     Dosage: 40 MG ORAL
     Route: 048

REACTIONS (8)
  - DISCOMFORT [None]
  - DRUG INTERACTION [None]
  - GRAND MAL CONVULSION [None]
  - HEART RATE DECREASED [None]
  - HEART RATE INCREASED [None]
  - HYPOTENSION [None]
  - INFUSION RELATED REACTION [None]
  - SYNCOPE VASOVAGAL [None]
